FAERS Safety Report 17889834 (Version 2)
Quarter: 2020Q3

REPORT INFORMATION
  Report Type: Spontaneous
  Country: US (occurrence: US)
  Receive Date: 20200612
  Receipt Date: 20200918
  Transmission Date: 20201103
  Serious: Yes (Death, Hospitalization)
  Sender: FDA-Public Use
  Company Number: US-MYLANLABS-2020M1055752

PATIENT
  Age: 56 Year
  Sex: Female
  Weight: 33 kg

DRUGS (1)
  1. HEPARIN [Suspect]
     Active Substance: HEPARIN SODIUM
     Indication: THROMBOSIS PROPHYLAXIS
     Dosage: 5000 INTERNATIONAL UNIT, Q8H
     Route: 058

REACTIONS (6)
  - Abdominal wall haematoma [Fatal]
  - Haemorrhagic disorder [Fatal]
  - Septic shock [Fatal]
  - Activated partial thromboplastin time prolonged [Unknown]
  - Hypotension [Fatal]
  - Haemoglobin decreased [Fatal]
